FAERS Safety Report 15180956 (Version 1)
Quarter: 2018Q3

REPORT INFORMATION
  Report Type: Spontaneous
  Country: US (occurrence: US)
  Receive Date: 20180723
  Receipt Date: 20180723
  Transmission Date: 20181010
  Serious: Yes (Hospitalization)
  Sender: FDA-Public Use
  Company Number: US-JNJFOC-20180723086

PATIENT
  Age: 55 Year
  Sex: Male

DRUGS (1)
  1. INVOKANA [Suspect]
     Active Substance: CANAGLIFLOZIN
     Indication: PRODUCT USED FOR UNKNOWN INDICATION
     Route: 048

REACTIONS (5)
  - Osteomyelitis acute [Unknown]
  - Cellulitis [Recovering/Resolving]
  - Sepsis [Recovered/Resolved]
  - Diabetic foot infection [Recovering/Resolving]
  - Metatarsal excision [Unknown]

NARRATIVE: CASE EVENT DATE: 20161215
